FAERS Safety Report 10417863 (Version 1)
Quarter: 2014Q2

REPORT INFORMATION
  Report Type: Spontaneous
  Country: US (occurrence: None)
  Receive Date: 20140609
  Receipt Date: 20140609
  Transmission Date: 20141212
  Serious: No
  Sender: FDA-Public Use
  Company Number: 2014TUS001778

PATIENT
  Age: 32 Year
  Sex: Female
  Weight: 65.8 kg

DRUGS (3)
  1. BRINTELLIX (VORTIOXETINE) TABLET, 10MG [Suspect]
     Indication: DEPRESSION
     Route: 048
     Dates: start: 20140221, end: 20140306
  2. VITAMIN D (ERGOCALCIFEROL) [Concomitant]
  3. FISH OIL [Concomitant]

REACTIONS (2)
  - Urticaria [None]
  - Pruritus [None]
